FAERS Safety Report 4519870-1 (Version None)
Quarter: 2004Q4

REPORT INFORMATION
  Report Type: 
  Country: None (occurrence: None)
  Receive Date: 20041202
  Receipt Date: 20041202
  Transmission Date: 20050328
  Serious: Yes (Life-Threatening)
  Sender: FDA-Public Use
  Company Number: None

PATIENT
  Age: 58 Year
  Sex: Male
  Weight: 92.1 kg

DRUGS (2)
  1. PREDNISONE [Suspect]
     Indication: RESPIRATORY DISORDER
     Dosage: 20MG  DAILY ORAL
     Route: 048
     Dates: start: 20040819, end: 20040826
  2. TEQUIN [Suspect]
     Indication: RESPIRATORY DISORDER
     Dosage: 400MG DAILY   ORAL
     Route: 048
     Dates: start: 20040819, end: 20040826

REACTIONS (7)
  - BLOOD CREATININE INCREASED [None]
  - BLOOD POTASSIUM INCREASED [None]
  - BLOOD SODIUM DECREASED [None]
  - CONFUSIONAL STATE [None]
  - DIABETIC KETOACIDOSIS [None]
  - HYPERGLYCAEMIA [None]
  - TREATMENT NONCOMPLIANCE [None]
